FAERS Safety Report 7926424-3 (Version None)
Quarter: 2011Q4

REPORT INFORMATION
  Report Type: 
  Country: None (occurrence: None)
  Receive Date: 20111118
  Receipt Date: 20111110
  Transmission Date: 20120403
  Serious: No
  Sender: FDA-Public Use
  Company Number: US-BIOGENIDEC-2011BI042984

PATIENT
  Age: 33 Year
  Sex: Female

DRUGS (3)
  1. TYSABRI [Suspect]
     Indication: MULTIPLE SCLEROSIS
     Route: 042
     Dates: start: 20111021
  2. TYSABRI [Suspect]
     Route: 042
     Dates: start: 20071217, end: 20080612
  3. TYSABRI [Suspect]
     Route: 042
     Dates: start: 20090827, end: 20100108

REACTIONS (2)
  - DECREASED APPETITE [None]
  - MULTIPLE SCLEROSIS [None]
